FAERS Safety Report 14569140 (Version 6)
Quarter: 2019Q1

REPORT INFORMATION
  Report Type: Report from Study
  Country: US (occurrence: US)
  Receive Date: 20180223
  Receipt Date: 20190123
  Transmission Date: 20190417
  Serious: Yes (Hospitalization)
  Sender: FDA-Public Use
  Company Number: US-EISAI MEDICAL RESEARCH-EC-2018-035045

PATIENT
  Age: 86 Year
  Sex: Female

DRUGS (13)
  1. LENVIMA [Suspect]
     Active Substance: LENVATINIB
     Dates: start: 201811
  2. LOSARTAN. [Concomitant]
     Active Substance: LOSARTAN
  3. HYDROCHLOROTHIAZIDE. [Concomitant]
     Active Substance: HYDROCHLOROTHIAZIDE
  4. LORAZEPAM. [Concomitant]
     Active Substance: LORAZEPAM
  5. LENVIMA [Suspect]
     Active Substance: LENVATINIB
     Route: 048
     Dates: start: 20180823, end: 2018
  6. POTASSIUM [Concomitant]
     Active Substance: POTASSIUM
  7. ATENOLOL. [Concomitant]
     Active Substance: ATENOLOL
  8. OMEPRAZOLE. [Concomitant]
     Active Substance: OMEPRAZOLE
  9. PRAVASTATIN. [Concomitant]
     Active Substance: PRAVASTATIN
  10. SYNTHROID [Concomitant]
     Active Substance: LEVOTHYROXINE SODIUM
  11. LENVIMA [Suspect]
     Active Substance: LENVATINIB
     Indication: THYROID CANCER
     Route: 048
     Dates: start: 20180106, end: 20180211
  12. HYDRALAZINE [Concomitant]
     Active Substance: HYDRALAZINE HYDROCHLORIDE
  13. CLONIDINE. [Concomitant]
     Active Substance: CLONIDINE

REACTIONS (38)
  - Aphasia [Not Recovered/Not Resolved]
  - Feeling cold [Unknown]
  - Throat tightness [Not Recovered/Not Resolved]
  - Pain in extremity [Not Recovered/Not Resolved]
  - Somnolence [Unknown]
  - Feeling hot [Recovered/Resolved]
  - Feeling abnormal [Recovered/Resolved]
  - Upper respiratory tract congestion [Not Recovered/Not Resolved]
  - Headache [Unknown]
  - Depression [Unknown]
  - Hypertension [Unknown]
  - Insomnia [Recovered/Resolved]
  - Glossodynia [Not Recovered/Not Resolved]
  - Haemoptysis [Not Recovered/Not Resolved]
  - Mobility decreased [Not Recovered/Not Resolved]
  - Cough [Not Recovered/Not Resolved]
  - Joint swelling [Unknown]
  - Malignant neoplasm progression [Unknown]
  - Vomiting [Unknown]
  - Fatigue [Unknown]
  - Pleural effusion [Recovering/Resolving]
  - Dysphagia [Not Recovered/Not Resolved]
  - Pollakiuria [Not Recovered/Not Resolved]
  - Visual acuity reduced [Unknown]
  - Eye pain [Unknown]
  - Tremor [Recovered/Resolved]
  - Constipation [Not Recovered/Not Resolved]
  - Abdominal discomfort [Unknown]
  - Weight decreased [Unknown]
  - Dizziness [Unknown]
  - Tongue erythema [Not Recovered/Not Resolved]
  - Vasodilatation [Unknown]
  - Heart rate abnormal [Not Recovered/Not Resolved]
  - Hyperhidrosis [Recovered/Resolved]
  - Dyspnoea [Unknown]
  - Dry mouth [Unknown]
  - Vision blurred [Unknown]
  - Ageusia [Unknown]

NARRATIVE: CASE EVENT DATE: 201801
